FAERS Safety Report 7872617-3 (Version None)
Quarter: 2011Q4

REPORT INFORMATION
  Report Type: 
  Country: None (occurrence: None)
  Receive Date: 20111030
  Receipt Date: 20110429
  Transmission Date: 20120403
  Serious: No
  Sender: FDA-Public Use
  Company Number: US-AMGEN-USASP2011022511

PATIENT
  Sex: Female

DRUGS (3)
  1. CELEBREX [Concomitant]
  2. ENBREL [Suspect]
     Indication: RHEUMATOID ARTHRITIS
     Dosage: 50 MG, QWK
     Dates: start: 20110420
  3. METHOTREXATE [Concomitant]
     Dates: start: 20110301

REACTIONS (6)
  - INJECTION SITE PAIN [None]
  - ARTHRALGIA [None]
  - JOINT LOCK [None]
  - PAIN IN EXTREMITY [None]
  - PAIN [None]
  - NAUSEA [None]
